FAERS Safety Report 11692868 (Version 1)
Quarter: 2015Q4

REPORT INFORMATION
  Report Type: Spontaneous
  Country: IN (occurrence: IN)
  Receive Date: 20151103
  Receipt Date: 20151103
  Transmission Date: 20160304
  Serious: Yes (Hospitalization, Other)
  Sender: FDA-Public Use
  Company Number: IN-WATSON-2015-21084

PATIENT
  Age: 4 Month
  Sex: Male
  Weight: 1.6 kg

DRUGS (1)
  1. BETAMETHASONE SODIUM PHOSPHATE (WATSON LABORATORIES) [Suspect]
     Active Substance: BETAMETHASONE SODIUM PHOSPHATE
     Indication: LOW BIRTH WEIGHT BABY
     Dosage: 0.5 MG, BID
     Route: 048

REACTIONS (3)
  - Off label use [Recovered/Resolved]
  - Cushing^s syndrome [Recovered/Resolved]
  - Intentional product misuse [Recovered/Resolved]
